FAERS Safety Report 8848706 (Version 2)
Quarter: 2012Q4

REPORT INFORMATION
  Report Type: 
  Country: US (occurrence: US)
  Receive Date: 20121018
  Receipt Date: 20121026
  Transmission Date: 20130627
  Serious: Yes (Hospitalization, Other)
  Sender: FDA-Public Use
  Company Number: US-AMGEN-USASP2012065176

PATIENT
  Sex: Female

DRUGS (1)
  1. PROLIA [Suspect]
     Indication: OSTEOPOROSIS POSTMENOPAUSAL
     Dosage: UNK
     Route: 030
     Dates: start: 20120913

REACTIONS (9)
  - Chest pain [Unknown]
  - Infection [Unknown]
  - Asthenia [Unknown]
  - Rhinitis [Unknown]
  - Lung infection [Unknown]
  - Gastric disorder [Unknown]
  - Immunodeficiency [Unknown]
  - Incorrect route of drug administration [Unknown]
  - Muscular weakness [Unknown]
